FAERS Safety Report 5934251-1 (Version None)
Quarter: 2008Q4

REPORT INFORMATION
  Report Type: 
  Country: None (occurrence: None)
  Receive Date: 20081029
  Receipt Date: 20081020
  Transmission Date: 20090506
  Serious: Yes (Hospitalization)
  Sender: FDA-Public Use
  Company Number: FI-ABBOTT-08P-055-0483068-00

PATIENT
  Sex: Female

DRUGS (8)
  1. DEPRAKINE TABLETS [Suspect]
     Indication: PSYCHOTIC DISORDER
     Route: 048
     Dates: start: 20080512, end: 20080812
  2. CLOZAPINE [Suspect]
     Indication: SCHIZOAFFECTIVE DISORDER
     Route: 048
     Dates: start: 20080609, end: 20080811
  3. ACETYLSALICYLIC ACID SRT [Concomitant]
     Indication: PROPHYLAXIS
     Route: 048
     Dates: start: 20080606
  4. BLOPRESS PLUS [Concomitant]
     Indication: HYPERTENSION
     Route: 048
     Dates: start: 20080606
  5. METFORMIN HCL [Concomitant]
     Indication: DIABETES MELLITUS
     Route: 048
     Dates: start: 20080606
  6. LEVOMEPROMAZINE MALEATE [Concomitant]
     Indication: INSOMNIA
     Route: 048
     Dates: start: 20080609
  7. LEKOVIT CA [Concomitant]
     Indication: MINERAL SUPPLEMENTATION
     Dosage: 500MG/10MG
     Route: 048
     Dates: start: 20080608
  8. OLANZAPINE [Concomitant]
     Indication: PSYCHOTIC DISORDER
     Route: 048
     Dates: start: 20080514

REACTIONS (4)
  - FATIGUE [None]
  - GENERAL PHYSICAL HEALTH DETERIORATION [None]
  - HEPATITIS [None]
  - VOMITING [None]
